FAERS Safety Report 12305955 (Version 3)
Quarter: 2016Q3

REPORT INFORMATION
  Report Type: Report from Study
  Country: US (occurrence: US)
  Receive Date: 20160426
  Receipt Date: 20160908
  Transmission Date: 20161109
  Serious: Yes (Death, Hospitalization)
  Sender: FDA-Public Use
  Company Number: US-JNJFOC-20160423387

PATIENT
  Sex: Female

DRUGS (3)
  1. IMBRUVICA [Suspect]
     Active Substance: IBRUTINIB
     Indication: CHRONIC LYMPHOCYTIC LEUKAEMIA
     Route: 048
     Dates: start: 201405
  2. PREDNISONE. [Concomitant]
     Active Substance: PREDNISONE
  3. ZANTAC [Concomitant]
     Active Substance: RANITIDINE HYDROCHLORIDE

REACTIONS (15)
  - Respiratory failure [Unknown]
  - Asthma [Unknown]
  - Hypocalcaemia [Recovered/Resolved]
  - Lactic acidosis [Unknown]
  - Mucosal haemorrhage [Recovered/Resolved]
  - Hyponatraemia [Recovered/Resolved]
  - Meningitis [Unknown]
  - Urinary tract infection [Unknown]
  - Pneumonia [Unknown]
  - Streptococcal sepsis [Unknown]
  - Disease progression [Fatal]
  - Metabolic encephalopathy [Unknown]
  - Hypoglycaemia [Not Recovered/Not Resolved]
  - Hyperammonaemia [Recovered/Resolved]
  - Hyperuricaemia [Recovered/Resolved]
